FAERS Safety Report 21632993 (Version 1)
Quarter: 2022Q4

REPORT INFORMATION
  Report Type: Report from Study
  Country: CA (occurrence: CA)
  Receive Date: 20221123
  Receipt Date: 20221123
  Transmission Date: 20230113
  Serious: Yes (Other)
  Sender: FDA-Public Use
  Company Number: None

PATIENT
  Age: 57 Year
  Sex: Male

DRUGS (6)
  1. LEVETIRACETAM [Interacting]
     Active Substance: LEVETIRACETAM
     Indication: Product used for unknown indication
     Route: 065
  2. TERIFLUNOMIDE [Interacting]
     Active Substance: TERIFLUNOMIDE
     Indication: Relapsing-remitting multiple sclerosis
     Dosage: 1 EVERY 1 DAYS
     Route: 048
  3. AMANTADINE [Concomitant]
     Active Substance: AMANTADINE
     Dosage: 1 EVERY 1 DAYS
     Route: 065
  4. LIPITOR [Concomitant]
     Active Substance: ATORVASTATIN CALCIUM
     Indication: Hypercholesterolaemia
     Route: 065
  5. PANTOPRAZOLE MAGNESIUM [Concomitant]
     Active Substance: PANTOPRAZOLE MAGNESIUM
     Route: 065
  6. VITAMIN D [Concomitant]
     Active Substance: VITAMIN D NOS
     Dosage: 1 EVERY 1 DAYS
     Route: 065

REACTIONS (4)
  - Drug interaction [Unknown]
  - Generalised tonic-clonic seizure [Recovered/Resolved]
  - Insomnia [Recovered/Resolved]
  - Partial seizures [Recovered/Resolved]
